FAERS Safety Report 6719660-5 (Version None)
Quarter: 2010Q2

REPORT INFORMATION
  Report Type: 
  Country: None (occurrence: None)
  Receive Date: 20100507
  Receipt Date: 20100422
  Transmission Date: 20101027
  Serious: Yes (Hospitalization)
  Sender: FDA-Public Use
  Company Number: 2010S1000109-002

PATIENT
  Age: 77 Year
  Sex: Female

DRUGS (2)
  1. PITAVASTATIN [Suspect]
     Dosage: 2MG/DAY, PO
     Route: 048
     Dates: start: 20041108
  2. AMLODIPINE BESYLATE [Concomitant]

REACTIONS (1)
  - BRONCHOPNEUMONIA [None]
